FAERS Safety Report 9096337 (Version 15)
Quarter: 2013Q3

REPORT INFORMATION
  Report Type: Report from Study
  Country: FR (occurrence: FR)
  Receive Date: 20130207
  Receipt Date: 20130828
  Transmission Date: 20140515
  Serious: Yes (Death, Life-Threatening, Hospitalization)
  Sender: FDA-Public Use
  Company Number: FR-ROCHE-1186199

PATIENT
  Age: 77 Year
  Sex: Female
  Weight: 70 kg

DRUGS (10)
  1. RHUPH20/TRASTUZUMAB [Suspect]
     Indication: BREAST CANCER
     Dosage: LAST DOSE PRIOR TO SAE: 03/JAN/2013
     Route: 058
     Dates: start: 20121030, end: 20130115
  2. DOCETAXEL [Suspect]
     Indication: CHEMOTHERAPY
     Route: 065
     Dates: start: 20121031, end: 20130103
  3. CYCLOPHOSPHAMIDE [Suspect]
     Indication: CHEMOTHERAPY
     Route: 065
     Dates: start: 20121031, end: 20130103
  4. SOLUPRED (FRANCE) [Concomitant]
     Route: 065
     Dates: start: 20130103
  5. CALENDULA [Concomitant]
     Route: 065
     Dates: start: 20130103
  6. TAHOR [Concomitant]
  7. RILMENIDINE [Concomitant]
  8. PEGFILGRASTIM [Concomitant]
     Route: 065
     Dates: start: 20121221
  9. NEULASTA [Concomitant]
     Dosage: STOP DATE: DEC/2012
     Route: 065
     Dates: start: 20121221
  10. ORBENINE [Concomitant]
     Route: 065
     Dates: start: 20121231

REACTIONS (1)
  - Neutropenic sepsis [Fatal]
